FAERS Safety Report 5912095-4 (Version None)
Quarter: 2008Q4

REPORT INFORMATION
  Report Type: 
  Country: None (occurrence: None)
  Receive Date: 20081006
  Receipt Date: 20080924
  Transmission Date: 20090506
  Serious: Yes (Death, Hospitalization)
  Sender: FDA-Public Use
  Company Number: AZAAU200800307

PATIENT
  Age: 54 Year
  Sex: Female
  Weight: 43 kg

DRUGS (2)
  1. VIDAZA [Suspect]
     Indication: MYELODYSPLASTIC SYNDROME
     Dosage: (76 MG/M2, X 7 DAY), SUBCUTANEOUS
     Route: 058
     Dates: start: 20080825, end: 20080831
  2. THALIDOMIDE [Suspect]
     Indication: MYELODYSPLASTIC SYNDROME
     Dosage: (50 MG DAILY), ORAL
     Route: 048
     Dates: start: 20080825, end: 20080909

REACTIONS (5)
  - ACUTE PULMONARY OEDEMA [None]
  - DISEASE PROGRESSION [None]
  - DRUG INEFFECTIVE [None]
  - ESCHERICHIA SEPSIS [None]
  - LEUKOCYTOSIS [None]
